FAERS Safety Report 21661706 (Version 1)
Quarter: 2022Q4

REPORT INFORMATION
  Report Type: Spontaneous
  Country: US (occurrence: None)
  Receive Date: 20221130
  Receipt Date: 20221130
  Transmission Date: 20230113
  Serious: Yes (Hospitalization)
  Sender: FDA-Public Use
  Company Number: US-ROCHE-3227707

PATIENT
  Sex: Female

DRUGS (1)
  1. PEGASYS [Suspect]
     Active Substance: PEGINTERFERON ALFA-2A
     Indication: Polycythaemia vera
     Dosage: LAST DOSE ON 29 AUG 2022
     Route: 058

REACTIONS (3)
  - Bipolar disorder [Unknown]
  - Intentional dose omission [Unknown]
  - Off label use [Unknown]
